FAERS Safety Report 18031309 (Version 2)
Quarter: 2020Q3

REPORT INFORMATION
  Report Type: Spontaneous
  Country: HT (occurrence: HT)
  Receive Date: 20200716
  Receipt Date: 20200824
  Transmission Date: 20201103
  Serious: Yes (Death, Other)
  Sender: FDA-Public Use
  Company Number: NVSC2020HT198636

PATIENT
  Age: 13 Year
  Sex: Male

DRUGS (2)
  1. GLIVEC [Suspect]
     Active Substance: IMATINIB MESYLATE
     Dosage: 200 MG
     Route: 065
     Dates: start: 20180423, end: 20200314
  2. GLIVEC [Suspect]
     Active Substance: IMATINIB MESYLATE
     Indication: CHRONIC MYELOID LEUKAEMIA
     Dosage: (1 X 400 MG TABLET)
     Route: 065
     Dates: start: 20140422, end: 20180422

REACTIONS (5)
  - Respiratory distress [Unknown]
  - Neutropenia [Unknown]
  - Death [Fatal]
  - Abdominal distension [Unknown]
  - Anaemia [Unknown]

NARRATIVE: CASE EVENT DATE: 201804
